FAERS Safety Report 21594056 (Version 1)
Quarter: 2022Q4

REPORT INFORMATION
  Report Type: Spontaneous
  Country: LV (occurrence: LV)
  Receive Date: 20221115
  Receipt Date: 20221115
  Transmission Date: 20230113
  Serious: Yes (Other)
  Sender: FDA-Public Use
  Company Number: LV-NOVOPROD-978891

PATIENT
  Age: 68 Year
  Weight: 50.8 kg

DRUGS (3)
  1. RYBELSUS [Suspect]
     Active Substance: SEMAGLUTIDE
     Indication: Type 2 diabetes mellitus
     Dosage: 7 MG, QD
     Route: 048
     Dates: start: 202202
  2. LEVOTHYROXINE [Concomitant]
     Active Substance: LEVOTHYROXINE
     Dosage: 200 MCG
     Dates: start: 2021
  3. DAPAGLIFLOZIN PROPANEDIOL\METFORMIN HYDROCHLORIDE [Concomitant]
     Active Substance: DAPAGLIFLOZIN PROPANEDIOL\METFORMIN HYDROCHLORIDE
     Dosage: 10/2000 MG /PER
     Route: 048
     Dates: start: 202102

REACTIONS (3)
  - Angle closure glaucoma [Unknown]
  - Cataract [Unknown]
  - Presbyopia [Unknown]

NARRATIVE: CASE EVENT DATE: 20220505
